FAERS Safety Report 24579898 (Version 1)
Quarter: 2024Q4

REPORT INFORMATION
  Report Type: Spontaneous
  Country: US (occurrence: US)
  Receive Date: 20241105
  Receipt Date: 20241105
  Transmission Date: 20250115
  Serious: No
  Sender: CSPC OUYI PHARMACEUTICAL CO., LTD.
  Company Number: US-CSPC Ouyi Pharmaceutical Co., Ltd.-2164384

PATIENT
  Age: 61 Year
  Sex: Female

DRUGS (2)
  1. PAROXETINE [Suspect]
     Active Substance: PAROXETINE
     Indication: Adjustment disorder with depressed mood
  2. RANEXA [Concomitant]
     Active Substance: RANOLAZINE

REACTIONS (1)
  - Drug ineffective [Unknown]

NARRATIVE: CASE EVENT DATE: 20240905
